FAERS Safety Report 7107751-9 (Version None)
Quarter: 2010Q4

REPORT INFORMATION
  Report Type: 
  Country: None (occurrence: None)
  Receive Date: 20101117
  Receipt Date: 20101110
  Transmission Date: 20110411
  Serious: Yes (Death, Other)
  Sender: FDA-Public Use
  Company Number: US-CELGENEUS-163-21880-10102068

PATIENT
  Sex: Female

DRUGS (15)
  1. REVLIMID [Suspect]
     Indication: MULTIPLE MYELOMA
     Route: 048
     Dates: start: 20070702
  2. REVLIMID [Suspect]
     Dosage: 20MG-15MG
     Route: 048
     Dates: start: 20071001
  3. REVLIMID [Suspect]
     Route: 048
     Dates: start: 20080501
  4. REVLIMID [Suspect]
     Route: 048
     Dates: start: 20080501
  5. VITAMIN B-12 [Concomitant]
     Route: 048
  6. PROTONIX [Concomitant]
     Route: 048
  7. NORCO [Concomitant]
     Dosage: 7.5/325
     Route: 048
  8. LOMOTIL [Concomitant]
     Route: 048
  9. TYLENOL PM [Concomitant]
     Dosage: 1-2 TABLETS
     Route: 048
  10. DEXAMETHASONE [Concomitant]
     Route: 048
  11. COUMADIN [Concomitant]
     Route: 048
  12. ASPIRIN [Concomitant]
     Route: 048
  13. DOXIL [Concomitant]
     Route: 051
  14. ZOMETA [Concomitant]
     Route: 065
  15. CYCLOPHOSPHAMIDE [Concomitant]
     Route: 065

REACTIONS (6)
  - AZOTAEMIA [None]
  - DEHYDRATION [None]
  - MALNUTRITION [None]
  - MULTIPLE MYELOMA [None]
  - PANCYTOPENIA [None]
  - PNEUMONIA [None]
